FAERS Safety Report 7398506-9 (Version None)
Quarter: 2011Q2

REPORT INFORMATION
  Report Type: 
  Country: None (occurrence: None)
  Receive Date: 20110407
  Receipt Date: 20090122
  Transmission Date: 20111010
  Serious: No
  Sender: FDA-Public Use
  Company Number: US-BIOGENIDEC-2009BI002471

PATIENT
  Sex: Male

DRUGS (3)
  1. SEROQUEL [Concomitant]
     Indication: DEPRESSION
  2. LITHIUM [Concomitant]
     Indication: BIPOLAR DISORDER
  3. TYSABRI [Suspect]
     Indication: MULTIPLE SCLEROSIS
     Route: 042
     Dates: start: 20080926

REACTIONS (8)
  - COGNITIVE DISORDER [None]
  - MUSCULAR WEAKNESS [None]
  - STRESS [None]
  - GAIT DISTURBANCE [None]
  - FEELING COLD [None]
  - HYPOAESTHESIA [None]
  - MEMORY IMPAIRMENT [None]
  - ANXIETY [None]
